FAERS Safety Report 5321144-6 (Version None)
Quarter: 2007Q2

REPORT INFORMATION
  Report Type: 
  Country: None (occurrence: None)
  Receive Date: 20070507
  Receipt Date: 20070507
  Transmission Date: 20071010
  Serious: Yes (Hospitalization)
  Sender: FDA-Public Use
  Company Number: None

PATIENT
  Age: 38 Year
  Sex: Male
  Weight: 74.8435 kg

DRUGS (1)
  1. COMPAZINE [Suspect]

REACTIONS (4)
  - ASTHENIA [None]
  - INJURY [None]
  - PAIN IN EXTREMITY [None]
  - VEIN DISCOLOURATION [None]
